FAERS Safety Report 23849488 (Version 2)
Quarter: 2024Q4

REPORT INFORMATION
  Report Type: Other
  Country: CA (occurrence: CA)
  Receive Date: 20240513
  Receipt Date: 20241015
  Transmission Date: 20250115
  Serious: No
  Sender: TOLMAR
  Company Number: CA-TOLMAR, INC.-24CA048525

PATIENT
  Age: 69 Year
  Sex: Male

DRUGS (6)
  1. ELIGARD [Suspect]
     Active Substance: LEUPROLIDE ACETATE
     Indication: Prostate cancer
     Dosage: 45 MILLIGRAM, Q 6 MONTH
     Route: 058
     Dates: start: 20230906
  2. ELIGARD [Suspect]
     Active Substance: LEUPROLIDE ACETATE
     Dosage: 45 MILLIGRAM, Q 6 MONTH
     Route: 058
     Dates: start: 20240415
  3. ELIGARD [Suspect]
     Active Substance: LEUPROLIDE ACETATE
     Dosage: 45 MILLIGRAM, Q 6 MONTH
     Route: 058
     Dates: start: 20240930
  4. ELIGARD [Suspect]
     Active Substance: LEUPROLIDE ACETATE
     Indication: Prostate cancer
     Dosage: 22.5 MILLIGRAM, Q 3 MONTH
     Route: 058
     Dates: start: 20210518, end: 20230906
  5. ELIGARD [Suspect]
     Active Substance: LEUPROLIDE ACETATE
     Indication: Prostate cancer
     Dosage: UNK
  6. XTANDI [Suspect]
     Active Substance: ENZALUTAMIDE
     Indication: Product used for unknown indication
     Dosage: UNK

REACTIONS (5)
  - Injection site haemorrhage [Recovered/Resolved]
  - Peripheral vascular disorder [Unknown]
  - Intentional product use issue [Recovered/Resolved]
  - Hot flush [Not Recovered/Not Resolved]
  - Hyperhidrosis [Unknown]

NARRATIVE: CASE EVENT DATE: 20240415
